FAERS Safety Report 5108262-2 (Version None)
Quarter: 2006Q3

REPORT INFORMATION
  Report Type: 
  Country: None (occurrence: None)
  Receive Date: 20060914
  Receipt Date: 20060914
  Transmission Date: 20061208
  Serious: Yes (Hospitalization)
  Sender: FDA-Public Use
  Company Number: None

PATIENT
  Sex: Male
  Weight: 84.5 kg

DRUGS (7)
  1. GLIADEL [Suspect]
     Dosage: 7.7 MG PER WAFER ONCE IV
     Route: 042
     Dates: start: 20060719
  2. O6-BENZYLGUANINE (O6BG) [Suspect]
     Indication: GLIOBLASTOMA MULTIFORME
     Dosage: 30 MG/M2 INFUSION X 5 DAYS IV
     Route: 042
     Dates: start: 20060719, end: 20060723
  3. CARBATROL [Concomitant]
  4. ZANTAC [Concomitant]
  5. HYDROCHLOROTHIAZDE TAB [Concomitant]
  6. SODIUM CHLORIDE [Concomitant]
  7. DECADRON [Concomitant]

REACTIONS (10)
  - DEEP VEIN THROMBOSIS [None]
  - DERMATITIS HERPETIFORMIS [None]
  - DRUG LEVEL DECREASED [None]
  - DYSPHAGIA [None]
  - HYPONATRAEMIA [None]
  - INFLAMMATION [None]
  - MENTAL STATUS CHANGES [None]
  - NUCLEAR MAGNETIC RESONANCE IMAGING BRAIN ABNORMAL [None]
  - PYREXIA [None]
  - SOMNOLENCE [None]
